FAERS Safety Report 9363484 (Version 1)
Quarter: 2013Q2

REPORT INFORMATION
  Report Type: Spontaneous
  Country: US (occurrence: US)
  Receive Date: 20130624
  Receipt Date: 20130624
  Transmission Date: 20140414
  Serious: Yes (Other)
  Sender: FDA-Public Use
  Company Number: US-GENZYME-FABR-1003284

PATIENT
  Age: 45 Year
  Sex: Female
  Weight: 77.69 kg

DRUGS (15)
  1. FABRAZYME [Suspect]
     Indication: FABRY^S DISEASE
     Dosage: 1 MG/KG, Q2W
     Route: 042
     Dates: start: 20080101
  2. ALBUTEROL W [Concomitant]
     Indication: ASTHMA
     Dosage: 2 DF (PUFFS), PRN
     Route: 055
  3. ADDERALL [Concomitant]
     Indication: PRODUCT USED FOR UNKNOWN INDICATION
     Dosage: 10 MG, QD
     Route: 065
  4. ASPIRIN [Concomitant]
     Indication: PRODUCT USED FOR UNKNOWN INDICATION
     Dosage: 81 MG, QD
     Route: 065
  5. BUDESONIDE W [Concomitant]
     Indication: WHEEZING
     Dosage: 2 DF, QD
     Route: 055
  6. ZIPSOR [Concomitant]
     Indication: PAIN
     Dosage: 25 MG, QID
     Route: 065
  7. DICYCLOMINE [Concomitant]
     Indication: DIARRHOEA
     Dosage: 10 MG, TID, PRN
     Route: 048
  8. CLARITIN [Concomitant]
     Indication: HYPERSENSITIVITY
     Dosage: 1 DF, BID
     Route: 065
  9. NASONEX [Concomitant]
     Indication: HYPERSENSITIVITY
     Dosage: 100 MCG, UNK
     Route: 045
  10. PRILOSEC [Concomitant]
     Indication: GASTROOESOPHAGEAL REFLUX DISEASE
     Dosage: 40 MG, QD
     Route: 065
  11. SODIUM BICARBONATE [Concomitant]
     Indication: PRODUCT USED FOR UNKNOWN INDICATION
     Dosage: 750 MG, BID
     Route: 065
  12. TAPENTADOL [Concomitant]
     Indication: PAIN
     Dosage: 100 MG, UNK (4-6 HRS)
     Route: 065
  13. TRAZODONE [Concomitant]
     Indication: INSOMNIA
     Dosage: 50 MG, AT BEDTIME
     Route: 065
  14. VILBRYD [Concomitant]
     Indication: DEPRESSION
     Dosage: 20 MG, QD
     Route: 065
  15. DIAMOX [Concomitant]
     Indication: PRODUCT USED FOR UNKNOWN INDICATION
     Dosage: UNK
     Route: 065

REACTIONS (2)
  - Deafness [Unknown]
  - Ear infection [Not Recovered/Not Resolved]
